FAERS Safety Report 6056229-2 (Version None)
Quarter: 2009Q1

REPORT INFORMATION
  Report Type: 
  Country: None (occurrence: None)
  Receive Date: 20090129
  Receipt Date: 20090119
  Transmission Date: 20090719
  Serious: Yes (Other)
  Sender: FDA-Public Use
  Company Number: TR-PFIZER INC-2009157694

PATIENT

DRUGS (1)
  1. METHYLPREDNISOLONE [Suspect]
     Dosage: UNK MG, UNK

REACTIONS (1)
  - ATRIOVENTRICULAR BLOCK [None]
